FAERS Safety Report 21967293 (Version 7)
Quarter: 2023Q1

REPORT INFORMATION
  Report Type: Report from Study
  Country: ES (occurrence: ES)
  Receive Date: 20230208
  Receipt Date: 20230317
  Transmission Date: 20230418
  Serious: Yes (Hospitalization)
  Sender: FDA-Public Use
  Company Number: ES-002147023-NVSC2023ES026692

PATIENT
  Age: 67 Year
  Sex: Female
  Weight: 64 kg

DRUGS (12)
  1. ALPELISIB [Suspect]
     Active Substance: ALPELISIB
     Indication: Ovarian cancer
     Dosage: 200 MG, QD
     Route: 048
     Dates: start: 20221017, end: 20230205
  2. OLAPARIB [Suspect]
     Active Substance: OLAPARIB
     Indication: Ovarian cancer
     Dosage: 200 MG, BID
     Route: 048
     Dates: start: 20221017, end: 20230205
  3. TELMISARTAN [Concomitant]
     Active Substance: TELMISARTAN
     Indication: Hypertension
     Dosage: UNK (PLUS)
     Route: 065
     Dates: start: 2019
  4. LANTUS [Concomitant]
     Active Substance: INSULIN GLARGINE
     Indication: Hyperglycaemia
     Dosage: UNK
     Route: 065
     Dates: start: 20221121
  5. APIDRA [Concomitant]
     Active Substance: INSULIN GLULISINE
     Indication: Hyperglycaemia
     Dosage: UNK
     Route: 065
     Dates: start: 20221202
  6. SULPIRIDE [Concomitant]
     Active Substance: SULPIRIDE
     Indication: Dizziness
     Dosage: UNK
     Route: 065
     Dates: start: 20230202
  7. CYMBALTA [Concomitant]
     Active Substance: DULOXETINE HYDROCHLORIDE
     Indication: Anxiety
     Dosage: UNK
     Route: 065
     Dates: start: 20200101
  8. BARNIDIPINE [Concomitant]
     Active Substance: BARNIDIPINE
     Indication: Hypertension
     Dosage: UNK
     Route: 065
     Dates: start: 2020
  9. LORAZEPAM [Concomitant]
     Active Substance: LORAZEPAM
     Indication: Insomnia
     Dosage: UNK
     Route: 065
     Dates: start: 2022
  10. LORMETAZEPAM [Concomitant]
     Active Substance: LORMETAZEPAM
     Indication: Insomnia
     Dosage: UNK
     Route: 065
     Dates: start: 202006
  11. OMEPRAZOLE [Concomitant]
     Active Substance: OMEPRAZOLE
     Indication: Gastrooesophageal reflux disease
     Dosage: UNK
     Route: 065
     Dates: start: 20221024
  12. XEROS [Concomitant]
     Indication: Dry mouth
     Dosage: UNK
     Route: 065
     Dates: start: 20221114

REACTIONS (1)
  - Hyponatraemia [Recovered/Resolved]

NARRATIVE: CASE EVENT DATE: 20230206
